FAERS Safety Report 6849667-9 (Version None)
Quarter: 2010Q3

REPORT INFORMATION
  Report Type: 
  Country: None (occurrence: None)
  Receive Date: 20100716
  Receipt Date: 20071002
  Transmission Date: 20110219
  Serious: No
  Sender: FDA-Public Use
  Company Number: US-PFIZER INC-2007084392

PATIENT
  Sex: Male
  Weight: 72.7 kg

DRUGS (5)
  1. CHANTIX [Suspect]
     Dates: start: 20070101, end: 20070101
  2. INSULIN LISPRO [Concomitant]
     Indication: DIABETES MELLITUS
  3. LANTUS [Concomitant]
     Indication: DIABETES MELLITUS
  4. QUINAPRIL [Concomitant]
     Indication: HYPERTENSION
  5. CRESTOR [Concomitant]
     Indication: BLOOD CHOLESTEROL INCREASED

REACTIONS (2)
  - NAUSEA [None]
  - SOMNOLENCE [None]
